FAERS Safety Report 4354390-9 (Version None)
Quarter: 2004Q2

REPORT INFORMATION
  Report Type: 
  Country: None (occurrence: None)
  Receive Date: 20040503
  Receipt Date: 20040423
  Transmission Date: 20050107
  Serious: Yes (Hospitalization, Other)
  Sender: FDA-Public Use
  Company Number: 04-126-0768-1

PATIENT
  Age: 69 Year
  Sex: Male

DRUGS (2)
  1. DAUNORUBICIN, UNKNOWN STRENGTH  AND MANUFACTURER [Suspect]
     Indication: ACUTE LEUKAEMIA
     Dosage: 70 MG IV QD
     Route: 042
     Dates: start: 20040318, end: 20040320
  2. CYTARABINE [Suspect]
     Indication: ACUTE LEUKAEMIA
     Dosage: 1200 MG IV QD
     Route: 042
     Dates: start: 20040317, end: 20040324

REACTIONS (2)
  - NEUTROPENIA [None]
  - PYREXIA [None]
